FAERS Safety Report 4618563-X (Version None)
Quarter: 2005Q1

REPORT INFORMATION
  Report Type: 
  Country: None (occurrence: None)
  Receive Date: 20050323
  Receipt Date: 20050304
  Transmission Date: 20050727
  Serious: Yes (Hospitalization)
  Sender: FDA-Public Use
  Company Number: DE_050315443

PATIENT
  Age: 26 Year
  Sex: Male

DRUGS (7)
  1. ZYPREXA VELOTAB                                   (OLANZAPINE) [Suspect]
     Indication: BIPOLAR DISORDER
     Dosage: 40 MG DAY
     Route: 048
     Dates: start: 20040424, end: 20040614
  2. LORAZEPAM [Concomitant]
  3. TRILEPTAL [Concomitant]
  4. LITHIUM CARBONATE [Concomitant]
  5. FAUSTAN           (DIAZEPAM) [Concomitant]
  6. NEXIUM [Concomitant]
  7. METOPROLOL SUCCINATE [Concomitant]

REACTIONS (12)
  - BLOOD PRESSURE SYSTOLIC INCREASED [None]
  - DRUG INTERACTION [None]
  - GENERAL PHYSICAL HEALTH DETERIORATION [None]
  - GRAND MAL CONVULSION [None]
  - NAUSEA [None]
  - NEUROTOXICITY [None]
  - OVERDOSE [None]
  - SOMNOLENCE [None]
  - SPEECH DISORDER [None]
  - TOXICOLOGIC TEST ABNORMAL [None]
  - VISUAL DISTURBANCE [None]
  - VOMITING [None]
